FAERS Safety Report 6681449 (Version 5)
Quarter: 2013Q2

REPORT INFORMATION
  Report Type: Spontaneous
  Country: US (occurrence: US)
  Receive Date: 20080626
  Receipt Date: 20130422
  Transmission Date: 20140414
  Serious: Yes (Death, Hospitalization, Other)
  Sender: FDA-Public Use
  Company Number: US-ASTRAZENECA-2008UW12623

PATIENT
  Age: 23 Year
  Sex: Male

DRUGS (34)
  1. SEROQUEL [Suspect]
     Indication: SUSPICIOUSNESS
     Route: 048
  2. SEROQUEL [Interacting]
     Indication: AGITATION
     Route: 048
  3. SEROQUEL [Interacting]
     Indication: IRRITABILITY
     Route: 048
  4. SEROQUEL [Interacting]
     Indication: INSOMNIA
     Route: 048
  5. SEROQUEL [Interacting]
     Indication: POST-TRAUMATIC STRESS DISORDER
     Route: 048
  6. SEROQUEL [Interacting]
     Indication: SUSPICIOUSNESS
     Route: 048
     Dates: start: 2007
  7. SEROQUEL [Interacting]
     Indication: AGITATION
     Route: 048
     Dates: start: 2007
  8. SEROQUEL [Interacting]
     Indication: IRRITABILITY
     Route: 048
     Dates: start: 2007
  9. SEROQUEL [Interacting]
     Indication: INSOMNIA
     Route: 048
     Dates: start: 2007
  10. SEROQUEL [Interacting]
     Indication: POST-TRAUMATIC STRESS DISORDER
     Route: 048
     Dates: start: 2007
  11. SEROQUEL [Interacting]
     Indication: SUSPICIOUSNESS
     Route: 048
  12. SEROQUEL [Interacting]
     Indication: AGITATION
     Route: 048
  13. SEROQUEL [Interacting]
     Indication: IRRITABILITY
     Route: 048
  14. SEROQUEL [Interacting]
     Indication: INSOMNIA
     Route: 048
  15. SEROQUEL [Interacting]
     Indication: POST-TRAUMATIC STRESS DISORDER
     Route: 048
  16. SEROQUEL [Interacting]
     Indication: SUSPICIOUSNESS
     Route: 048
  17. SEROQUEL [Interacting]
     Indication: AGITATION
     Route: 048
  18. SEROQUEL [Interacting]
     Indication: IRRITABILITY
     Route: 048
  19. SEROQUEL [Interacting]
     Indication: INSOMNIA
     Route: 048
  20. SEROQUEL [Interacting]
     Indication: POST-TRAUMATIC STRESS DISORDER
     Route: 048
  21. PAROXETINE [Interacting]
     Indication: POST-TRAUMATIC STRESS DISORDER
  22. PAROXETINE [Interacting]
     Indication: POST-TRAUMATIC STRESS DISORDER
  23. PAROXETINE [Interacting]
     Indication: POST-TRAUMATIC STRESS DISORDER
  24. PAROXETINE [Interacting]
     Indication: POST-TRAUMATIC STRESS DISORDER
  25. PAROXETINE [Interacting]
     Indication: POST-TRAUMATIC STRESS DISORDER
     Dosage: PAXIL
  26. CLONAZEPAM [Suspect]
     Indication: POST-TRAUMATIC STRESS DISORDER
  27. CLONAZEPAM [Suspect]
     Indication: POST-TRAUMATIC STRESS DISORDER
  28. CLONAZEPAM [Suspect]
     Indication: POST-TRAUMATIC STRESS DISORDER
  29. CLONAZEPAM [Suspect]
     Indication: POST-TRAUMATIC STRESS DISORDER
     Dosage: KLONOPIN
  30. MIRTAZAPINE [Suspect]
  31. VALPROIC ACID [Suspect]
     Indication: IRRITABILITY
  32. VALPROIC ACID [Suspect]
     Indication: ABNORMAL BEHAVIOUR
  33. OXCARBAZEPINE [Suspect]
  34. ESCITALOPRAM [Concomitant]

REACTIONS (20)
  - Drug interaction [Fatal]
  - Overdose [Fatal]
  - Toxicity to various agents [Fatal]
  - Death [Fatal]
  - Bipolar disorder [Unknown]
  - Tearfulness [Unknown]
  - Poor quality sleep [Unknown]
  - Anxiety [Unknown]
  - Anger [Recovering/Resolving]
  - Diarrhoea [Unknown]
  - Disorientation [Unknown]
  - Tremor [Unknown]
  - Nightmare [Unknown]
  - Treatment noncompliance [Unknown]
  - Irritability [Recovering/Resolving]
  - Weight increased [Unknown]
  - Dysarthria [Unknown]
  - Incorrect dose administered [Unknown]
  - Wrong drug administered [Unknown]
  - Off label use [Fatal]
